FAERS Safety Report 15277626 (Version 2)
Quarter: 2025Q4

REPORT INFORMATION
  Report Type: Spontaneous
  Country: AU (occurrence: AU)
  Receive Date: 20180814
  Receipt Date: 20251226
  Transmission Date: 20260117
  Serious: Yes (Life-Threatening, Hospitalization, Other)
  Sender: SANOFI AVENTIS
  Company Number: AU-SA-2018SA210172

PATIENT
  Age: 47 Year
  Sex: Female

DRUGS (5)
  1. IRBESARTAN [Interacting]
     Active Substance: IRBESARTAN
     Dosage: UNK
  2. NITROGLYCERIN [Interacting]
     Active Substance: NITROGLYCERIN
     Dosage: UNK
  3. METFORMIN [Concomitant]
     Active Substance: METFORMIN HYDROCHLORIDE
     Dosage: UNK
  4. COLCHICINE [Concomitant]
     Active Substance: COLCHICINE
     Dosage: UNK
  5. ASPIRIN [Concomitant]
     Active Substance: ASPIRIN
     Dosage: UNK

REACTIONS (7)
  - Acute myocardial infarction [Recovered/Resolved]
  - Diabetic ketoacidosis [Recovered/Resolved]
  - Acidosis [Recovered/Resolved]
  - Dehydration [Recovered/Resolved]
  - Blood ketone body present [Recovered/Resolved]
  - Blood glucose abnormal [Recovered/Resolved]
  - Vomiting [Recovered/Resolved]
